FAERS Safety Report 9299817 (Version 2)
Quarter: 2013Q1

REPORT INFORMATION
  Report Type: Spontaneous
  Country: US (occurrence: None)
  Receive Date: 20121115
  Receipt Date: 20121231
  Transmission Date: 20140127
  Serious: Yes (Hospitalization)
  Sender: FDA-Public Use
  Company Number: JPI-P-019285

PATIENT
  Age: 47 Year
  Sex: Female
  Weight: 53.52 kg

DRUGS (4)
  1. XYREM (500 MILLIGRAM/MILLILITERS, SOLUTION)(SODIUM OXYBATE) [Suspect]
     Indication: NARCOLEPSY
     Dosage: (1.5 MG, 2 IN 1 D)
     Route: 048
     Dates: start: 20110326, end: 2011
  2. XYREM (500 MILLIGRAM/MILLILITERS, SOLUTION)(SODIUM OXYBATE) [Suspect]
     Indication: SOMNOLENCE
     Dosage: (1.5 MG, 2 IN 1 D)
     Route: 048
     Dates: start: 20110326, end: 2011
  3. PROVIGIL (MODAFINIL) [Concomitant]
  4. RITALIN (METHYLPHENIDATE HYDROCHLORIDE) [Concomitant]

REACTIONS (15)
  - Back pain [None]
  - Sinusitis [None]
  - Somnambulism [None]
  - Abnormal sleep-related event [None]
  - Drug dose omission [None]
  - Back pain [None]
  - Sciatica [None]
  - Drug ineffective [None]
  - Nerve compression [None]
  - Joint injury [None]
  - Muscle spasms [None]
  - Feeling abnormal [None]
  - Hangover [None]
  - Headache [None]
  - Dizziness [None]
